FAERS Safety Report 5990635-7 (Version None)
Quarter: 2008Q4

REPORT INFORMATION
  Report Type: 
  Country: None (occurrence: None)
  Receive Date: 20081211
  Receipt Date: 20081209
  Transmission Date: 20090506
  Serious: Yes (Hospitalization)
  Sender: FDA-Public Use
  Company Number: D0059323A

PATIENT
  Age: 65 Year
  Sex: Female
  Weight: 54 kg

DRUGS (2)
  1. LEUKERAN [Suspect]
     Dosage: 5.2MG PER DAY
     Route: 065
  2. DICLO [Concomitant]
     Indication: ARTHRITIS
     Route: 065

REACTIONS (2)
  - HYPOAESTHESIA [None]
  - VERTIGO [None]
